FAERS Safety Report 5749293-9 (Version None)
Quarter: 2008Q2

REPORT INFORMATION
  Report Type: 
  Country: None (occurrence: None)
  Receive Date: 20080527
  Receipt Date: 20080516
  Transmission Date: 20081010
  Serious: Yes (Hospitalization)
  Sender: FDA-Public Use
  Company Number: GB-WYE-H04197808

PATIENT
  Age: 88 Year
  Sex: Male

DRUGS (9)
  1. AMIODARONE [Suspect]
     Indication: ATRIAL FIBRILLATION
     Route: 048
  2. AMLODIPINE [Concomitant]
     Dosage: 5 MG
     Route: 065
  3. ACETYLSALICYLIC ACID SRT [Concomitant]
     Dosage: 75 MG
     Route: 065
  4. SERETIDE [Concomitant]
  5. LANSOPRAZOLE [Concomitant]
     Dosage: 15 MG
     Route: 065
  6. MONTELUKAST SODIUM [Concomitant]
     Dosage: 10 MG
     Route: 065
  7. ALBUTEROL [Concomitant]
     Dosage: 2 DF
     Route: 065
  8. SIMVASTATIN [Suspect]
     Indication: HYPERCHOLESTEROLAEMIA
     Route: 048
  9. ISOSORBIDE MONONITRATE [Concomitant]
     Route: 065

REACTIONS (2)
  - HEPATITIS ACUTE [None]
  - LOWER RESPIRATORY TRACT INFECTION [None]
